FAERS Safety Report 8305999-9 (Version None)
Quarter: 2012Q2

REPORT INFORMATION
  Report Type: 
  Country: None (occurrence: None)
  Receive Date: 20120423
  Receipt Date: 20120416
  Transmission Date: 20120825
  Serious: Yes (Other)
  Sender: FDA-Public Use
  Company Number: US-ROCHE-1060063

PATIENT
  Sex: Male

DRUGS (2)
  1. XELODA [Suspect]
     Indication: COLORECTAL CANCER
  2. AVASTIN [Suspect]
     Indication: COLORECTAL CANCER
     Route: 042

REACTIONS (5)
  - DISEASE PROGRESSION [None]
  - DISEASE RECURRENCE [None]
  - CARDIAC FAILURE [None]
  - EJECTION FRACTION DECREASED [None]
  - DYSPNOEA [None]
